FAERS Safety Report 5450971-X (Version None)
Quarter: 2007Q3

REPORT INFORMATION
  Report Type: 
  Country: None (occurrence: None)
  Receive Date: 20070913
  Receipt Date: 20070830
  Transmission Date: 20080115
  Serious: Yes (Congenital Anomaly)
  Sender: FDA-Public Use
  Company Number: DE-JNJFOC-20060702539

PATIENT

DRUGS (5)
  1. DIPIPERON [Suspect]
     Indication: DRUG EXPOSURE DURING PREGNANCY
  2. ABILIFY [Suspect]
  3. ABILIFY [Suspect]
     Indication: DRUG EXPOSURE DURING PREGNANCY
  4. ZOLOFT [Suspect]
     Indication: DRUG EXPOSURE DURING PREGNANCY
  5. HALOPERIDOL [Suspect]
     Indication: DRUG EXPOSURE DURING PREGNANCY
     Route: 064

REACTIONS (2)
  - MICROCEPHALY [None]
  - SPINA BIFIDA [None]
